FAERS Safety Report 6638145-8 (Version None)
Quarter: 2010Q1

REPORT INFORMATION
  Report Type: 
  Country: None (occurrence: None)
  Receive Date: 20100301
  Receipt Date: 20090918
  Transmission Date: 20100710
  Serious: Yes (Other)
  Sender: FDA-Public Use
  Company Number: ALA_00364_2009

PATIENT

DRUGS (1)
  1. REGLAN [Suspect]
     Indication: DRUG USE FOR UNKNOWN INDICATION
     Dosage: THREE AND ONE-HALF TABLETS ORAL
     Route: 048
     Dates: start: 20090101

REACTIONS (2)
  - DYSPHONIA [None]
  - PARKINSONISM [None]
